FAERS Safety Report 7436896-9 (Version None)
Quarter: 2011Q2

REPORT INFORMATION
  Report Type: 
  Country: None (occurrence: None)
  Receive Date: 20110426
  Receipt Date: 20110419
  Transmission Date: 20111010
  Serious: Yes (Other)
  Sender: FDA-Public Use
  Company Number: KR-GENZYME-FLUD-1000646

PATIENT

DRUGS (3)
  1. MELPHALAN [Suspect]
     Indication: THERAPEUTIC PROCEDURE
     Dosage: 140 MG/M2, UNK
     Route: 065
  2. FLUDARA [Suspect]
     Indication: THERAPEUTIC PROCEDURE
     Dosage: 150 MG/M2, UNK
     Route: 065
  3. METHOTREXATE [Concomitant]
     Indication: PROPHYLAXIS AGAINST GRAFT VERSUS HOST DISEASE
     Dosage: UNK
     Route: 065

REACTIONS (2)
  - CHRONIC GRAFT VERSUS HOST DISEASE [None]
  - ACUTE GRAFT VERSUS HOST DISEASE [None]
